FAERS Safety Report 13096353 (Version 1)
Quarter: 2017Q1

REPORT INFORMATION
  Report Type: Spontaneous
  Country: US (occurrence: US)
  Receive Date: 20170106
  Receipt Date: 20170106
  Transmission Date: 20170428
  Serious: No
  Sender: FDA-Public Use
  Company Number: None

PATIENT
  Age: 59 Year
  Sex: Male

DRUGS (3)
  1. ORENCIA [Suspect]
     Active Substance: ABATACEPT
     Indication: RHEUMATOID ARTHRITIS
  2. ORENCIA [Suspect]
     Active Substance: ABATACEPT
     Indication: ESSENTIAL HYPERTENSION
  3. ORENCIA [Suspect]
     Active Substance: ABATACEPT
     Indication: SPINAL COLUMN STENOSIS

REACTIONS (1)
  - Sinusitis [None]

NARRATIVE: CASE EVENT DATE: 20170106
